FAERS Safety Report 16129625 (Version 1)
Quarter: 2019Q1

REPORT INFORMATION
  Report Type: Other
  Country: None (occurrence: US)
  Receive Date: 20190328
  Receipt Date: 20190328
  Transmission Date: 20190418
  Serious: Yes (Hospitalization)
  Sender: FDA-Public Use
  Company Number: US-MEDAC PHARMA, INC.-2064858

PATIENT
  Age: 47 Year
  Sex: Male
  Weight: 75.8 kg

DRUGS (5)
  1. ONCASPAR [Suspect]
     Active Substance: PEGASPARGASE
  2. CYCLOPHOSPHAMIDE. [Suspect]
     Active Substance: CYCLOPHOSPHAMIDE
  3. CYTARABINE. [Suspect]
     Active Substance: CYTARABINE
  4. METHOTREXATE. [Suspect]
     Active Substance: METHOTREXATE
  5. MERCAPTOPURINE. [Suspect]
     Active Substance: MERCAPTOPURINE

REACTIONS (3)
  - Neutrophil count decreased [Unknown]
  - Feeling cold [Unknown]
  - Body temperature increased [Unknown]

NARRATIVE: CASE EVENT DATE: 20181015
